FAERS Safety Report 19264057 (Version 3)
Quarter: 2021Q2

REPORT INFORMATION
  Report Type: Spontaneous
  Country: CA (occurrence: CA)
  Receive Date: 20210517
  Receipt Date: 20210629
  Transmission Date: 20210717
  Serious: Yes (Other)
  Sender: FDA-Public Use
  Company Number: CA-CELLTRION INC.-2020CA031871

PATIENT

DRUGS (15)
  1. METHOPRAZINE [Concomitant]
     Active Substance: LEVOMEPROMAZINE MALEATE
     Dosage: 50 MG, 2 TABLETS PO (25MG EACH TABLET) OD
     Route: 048
  2. INFLECTRA [Suspect]
     Active Substance: INFLIXIMAB-DYYB
     Dosage: 400 MG EVERY 8 WEEKS
     Route: 042
     Dates: start: 20201023
  3. ACETAMINOPHEN. [Concomitant]
     Active Substance: ACETAMINOPHEN
     Indication: PREMEDICATION
     Dosage: UNK
  4. TRYPTOPHAN, L? [Concomitant]
     Active Substance: TRYPTOPHAN
     Dosage: 1000 MG BEDTIME DAILY
     Route: 048
  5. INFLECTRA [Suspect]
     Active Substance: INFLIXIMAB-DYYB
     Indication: CROHN^S DISEASE
     Dosage: 400 MG EVERY 8 WEEKS
     Route: 042
     Dates: start: 20191129
  6. INFLECTRA [Suspect]
     Active Substance: INFLIXIMAB-DYYB
     Dosage: 10 MG/KG EVERY 4 WEEKS
     Route: 042
     Dates: start: 20210102
  7. HYDROCORTISONE. [Concomitant]
     Active Substance: HYDROCORTISONE
     Indication: PREMEDICATION
     Dosage: UNK
  8. QUETAPIN [Concomitant]
     Active Substance: QUETIAPINE FUMARATE
     Dosage: 75 MG, PO OD AT BEDTIME
     Route: 048
  9. BENADRYL [Concomitant]
     Active Substance: DIPHENHYDRAMINE HYDROCHLORIDE
     Indication: PREMEDICATION
     Dosage: UNK
  10. CIPROFLOXACIN. [Concomitant]
     Active Substance: CIPROFLOXACIN
     Dosage: 500 MG, 2X/DAY
     Route: 048
  11. NABILONE [Concomitant]
     Active Substance: NABILONE
     Dosage: 3 MG, 1X/DAY
     Route: 048
  12. INFLECTRA [Suspect]
     Active Substance: INFLIXIMAB-DYYB
     Dosage: 10 MG/KG EVERY 4 WEEKS
     Route: 042
     Dates: start: 20210502
  13. METRONIDAZOLE. [Concomitant]
     Active Substance: METRONIDAZOLE
     Dosage: 500 MG, 1X/DAY
     Route: 048
     Dates: start: 20190406
  14. EMTEC [Concomitant]
     Active Substance: ACETAMINOPHEN\CODEINE PHOSPHATE
     Dosage: 30MG 2 TABLETS AS NEEDED
  15. METRONIDAZOLE. [Concomitant]
     Active Substance: METRONIDAZOLE
     Dosage: 500 MG  3X/DAY
     Route: 048
     Dates: start: 20190406

REACTIONS (9)
  - Chills [Unknown]
  - Anal fistula [Unknown]
  - Renal pain [Unknown]
  - Tachycardia [Unknown]
  - Back pain [Unknown]
  - Nasopharyngitis [Unknown]
  - Off label use [Unknown]
  - Headache [Unknown]
  - Malaise [Unknown]
